FAERS Safety Report 14349859 (Version 1)
Quarter: 2018Q1

REPORT INFORMATION
  Report Type: Spontaneous
  Country: US (occurrence: US)
  Receive Date: 20180104
  Receipt Date: 20180104
  Transmission Date: 20180509
  Serious: No
  Sender: FDA-Public Use
  Company Number: US-DRREDDYS-USA/USA/17/0090692

PATIENT
  Age: 67 Year
  Sex: Male
  Weight: 71.66 kg

DRUGS (6)
  1. NICOTINE. [Suspect]
     Active Substance: NICOTINE
     Route: 062
     Dates: start: 20170506
  2. VALIUM [Concomitant]
     Active Substance: DIAZEPAM
     Route: 062
     Dates: start: 20170506
  3. ASPIRIN. [Concomitant]
     Active Substance: ASPIRIN
     Indication: PRODUCT USED FOR UNKNOWN INDICATION
     Route: 065
  4. VALIUM [Concomitant]
     Active Substance: DIAZEPAM
     Indication: PRODUCT USED FOR UNKNOWN INDICATION
     Route: 062
  5. NICOTINE. [Suspect]
     Active Substance: NICOTINE
     Indication: SMOKING CESSATION THERAPY
     Route: 062
  6. VALIUM [Concomitant]
     Active Substance: DIAZEPAM
     Route: 065

REACTIONS (4)
  - Treatment noncompliance [Unknown]
  - Abnormal dreams [Not Recovered/Not Resolved]
  - Nausea [Recovering/Resolving]
  - Nervousness [Recovering/Resolving]

NARRATIVE: CASE EVENT DATE: 20170506
